FAERS Safety Report 16327749 (Version 4)
Quarter: 2019Q2

REPORT INFORMATION
  Report Type: Spontaneous
  Country: ES (occurrence: ES)
  Receive Date: 20190517
  Receipt Date: 20190517
  Transmission Date: 20190711
  Serious: Yes (Other)
  Sender: FDA-Public Use
  Company Number: ES-PFIZER INC-2019195966

PATIENT
  Age: 3 Year
  Sex: Male

DRUGS (6)
  1. METHOTREXATE SODIUM. [Suspect]
     Active Substance: METHOTREXATE SODIUM
     Indication: LANGERHANS^ CELL HISTIOCYTOSIS
     Dosage: 20 MG/M2, WEEKLY (METHOTREXATE, MERCAPTOPURINE COMBINED WITH FIVE-DAY PREDNISONE AND VINBLASTINE)
     Route: 048
  2. MERCAPTOPURINE. [Suspect]
     Active Substance: MERCAPTOPURINE
     Indication: LANGERHANS^ CELL HISTIOCYTOSIS
     Dosage: 50 MG/M2, DAILY (METHOTREXATE, MERCAPTOPURINE COMBINED WITH FIVE-DAY PREDNISONE AND VINBLASTINE)
  3. VINBLASTINE [Suspect]
     Active Substance: VINBLASTINE
     Indication: LANGERHANS^ CELL HISTIOCYTOSIS
     Dosage: 0.2 MG/KG/DOSE FOR 12 WEEKS
     Route: 042
  4. VINBLASTINE [Suspect]
     Active Substance: VINBLASTINE
     Dosage: 6 MG/M2, EVERY 3 WEEKS (METHOTREXATE, MERCAPTOPURINE COMBINED WITH FIVE-DAY PREDNISONE AND VINBLAST)
  5. PREDNISONE. [Suspect]
     Active Substance: PREDNISONE
     Indication: LANGERHANS^ CELL HISTIOCYTOSIS
     Dosage: 40 MG/M2, DAILY (METHOTREXATE, MERCAPTOPURINE COMBINED WITH FIVE-DAY PREDNISONE AND VINBLASTINE)
  6. CLOFARABINE. [Concomitant]
     Active Substance: CLOFARABINE
     Dosage: 30 MG/M2, UNK (EVERY 4 WEEKS)

REACTIONS (7)
  - Mesenteritis [Recovered/Resolved]
  - Febrile neutropenia [Recovered/Resolved]
  - Mycobacterial infection [Recovered/Resolved]
  - Norovirus test positive [Recovered/Resolved]
  - Malabsorption [Recovered/Resolved]
  - Respiratory syncytial virus infection [Recovered/Resolved]
  - Protein-losing gastroenteropathy [Recovered/Resolved]
